FAERS Safety Report 12990929 (Version 1)
Quarter: 2016Q4

REPORT INFORMATION
  Report Type: Spontaneous
  Country: US (occurrence: US)
  Receive Date: 20161130
  Receipt Date: 20161130
  Transmission Date: 20170207
  Serious: No
  Sender: FDA-Public Use
  Company Number: None

PATIENT
  Age: 64 Year
  Sex: Female
  Weight: 54 kg

DRUGS (13)
  1. NAPROXEN. [Concomitant]
     Active Substance: NAPROXEN
  2. FISH OIL [Concomitant]
     Active Substance: FISH OIL
  3. BUSPIRONE [Concomitant]
     Active Substance: BUSPIRONE HYDROCHLORIDE
  4. NORCO [Concomitant]
     Active Substance: ACETAMINOPHEN\HYDROCODONE BITARTRATE
  5. ELMIRON [Concomitant]
     Active Substance: PENTOSAN POLYSULFATE SODIUM
  6. BUTRANS [Suspect]
     Active Substance: BUPRENORPHINE
     Indication: FIBROMYALGIA
     Dosage: Q 7 DAYS
     Route: 062
     Dates: start: 20161018, end: 20161130
  7. ESTRADIOL. [Concomitant]
     Active Substance: ESTRADIOL
  8. ASPRIN [Concomitant]
     Active Substance: ASPIRIN
  9. IMODIUM [Concomitant]
     Active Substance: LOPERAMIDE HYDROCHLORIDE
  10. ZOFRAN [Concomitant]
     Active Substance: ONDANSETRON HYDROCHLORIDE
  11. MACROBID [Concomitant]
     Active Substance: NITROFURANTOIN\NITROFURANTOIN MONOHYDRATE
  12. TRAMADOL. [Concomitant]
     Active Substance: TRAMADOL
  13. TURMERIC [Concomitant]
     Active Substance: TURMERIC

REACTIONS (2)
  - Pruritus [None]
  - Application site irritation [None]

NARRATIVE: CASE EVENT DATE: 20161115
